FAERS Safety Report 6359397-8 (Version None)
Quarter: 2009Q3

REPORT INFORMATION
  Report Type: 
  Country: None (occurrence: None)
  Receive Date: 20090917
  Receipt Date: 20090915
  Transmission Date: 20100115
  Serious: Yes (Death)
  Sender: FDA-Public Use
  Company Number: BR-ABBOTT-09P-020-0597469-00

PATIENT
  Sex: Male
  Weight: 60 kg

DRUGS (3)
  1. HUMIRA [Suspect]
     Indication: RHEUMATOID ARTHRITIS
     Route: 058
     Dates: start: 20080101
  2. UNKNOWN [Concomitant]
     Indication: RHEUMATOID ARTHRITIS
  3. UNKNOWN [Concomitant]
     Indication: ANAEMIA

REACTIONS (2)
  - BRAIN OEDEMA [None]
  - HAEMORRHAGIC STROKE [None]
